FAERS Safety Report 15746561 (Version 1)
Quarter: 2018Q4

REPORT INFORMATION
  Report Type: Spontaneous
  Country: US (occurrence: US)
  Receive Date: 20181220
  Receipt Date: 20181220
  Transmission Date: 20190205
  Serious: Yes (Death, Hospitalization)
  Sender: FDA-Public Use
  Company Number: US-TEVA-2018-US-989126

PATIENT
  Age: 28 Year
  Sex: Male

DRUGS (19)
  1. FENTANYL. [Concomitant]
     Active Substance: FENTANYL
     Indication: STATUS EPILEPTICUS
     Route: 065
  2. FELBAMATE. [Concomitant]
     Active Substance: FELBAMATE
     Indication: STATUS EPILEPTICUS
     Route: 065
  3. ESLICARBAZEPINE [Concomitant]
     Active Substance: ESLICARBAZEPINE
     Indication: STATUS EPILEPTICUS
  4. PHENYTOIN. [Concomitant]
     Active Substance: PHENYTOIN
     Indication: STATUS EPILEPTICUS
     Route: 065
  5. MIDAZOLAM [Interacting]
     Active Substance: MIDAZOLAM HYDROCHLORIDE
     Dosage: INFUSION
  6. KETAMINE [Interacting]
     Active Substance: KETAMINE
     Indication: SEIZURE
     Dosage: INFUSION
  7. CLOBAZAM. [Concomitant]
     Active Substance: CLOBAZAM
     Indication: STATUS EPILEPTICUS
  8. LEVETIRACETAM. [Concomitant]
     Active Substance: LEVETIRACETAM
     Indication: STATUS EPILEPTICUS
     Route: 065
  9. PHENOBARBITAL. [Suspect]
     Active Substance: PHENOBARBITAL
     Indication: STATUS EPILEPTICUS
     Route: 065
  10. KETAMINE [Interacting]
     Active Substance: KETAMINE
     Indication: STATUS EPILEPTICUS
     Dosage: INFUSION
  11. KETAMINE [Interacting]
     Active Substance: KETAMINE
     Indication: SEIZURE
     Dosage: INFUSION
  12. VIGABATRIN. [Concomitant]
     Active Substance: VIGABATRIN
     Indication: STATUS EPILEPTICUS
     Route: 065
  13. LORAZEPAM. [Concomitant]
     Active Substance: LORAZEPAM
     Indication: STATUS EPILEPTICUS
     Route: 065
  14. CLONAZEPAM. [Concomitant]
     Active Substance: CLONAZEPAM
     Indication: STATUS EPILEPTICUS
     Route: 065
  15. TOPIRAMATE. [Suspect]
     Active Substance: TOPIRAMATE
     Indication: STATUS EPILEPTICUS
     Route: 065
  16. PROPOFOL. [Suspect]
     Active Substance: PROPOFOL
     Indication: STATUS EPILEPTICUS
     Dosage: HIGH DOSES
     Route: 065
  17. MIDAZOLAM [Interacting]
     Active Substance: MIDAZOLAM HYDROCHLORIDE
     Indication: STATUS EPILEPTICUS
     Dosage: INFUSION
  18. TIAGABINE [Concomitant]
     Active Substance: TIAGABINE
     Indication: STATUS EPILEPTICUS
  19. MIDAZOLAM [Interacting]
     Active Substance: MIDAZOLAM HYDROCHLORIDE
     Dosage: INFUSION

REACTIONS (9)
  - Hypotension [Unknown]
  - Drug interaction [Unknown]
  - Cardiac arrest [Fatal]
  - Bundle branch block right [Unknown]
  - Bradycardia [Unknown]
  - Metabolic acidosis [Unknown]
  - Propofol infusion syndrome [Unknown]
  - Blood lactic acid increased [Unknown]
  - Hyperchloraemia [Unknown]
